FAERS Safety Report 13451705 (Version 1)
Quarter: 2017Q2

REPORT INFORMATION
  Report Type: Spontaneous
  Country: US (occurrence: US)
  Receive Date: 20170417
  Receipt Date: 20170417
  Transmission Date: 20170830
  Serious: Yes (Death)
  Sender: FDA-Public Use
  Company Number: None

PATIENT
  Age: 64 Year
  Sex: Female

DRUGS (1)
  1. STIVARGA [Suspect]
     Active Substance: REGORAFENIB
     Indication: MALAISE
     Dosage: STIVARAGA (3X28) 40MG TAKE UP TO FOUR TABLETS (160MG) BY MOUTH ONCE DAILY FOR 21 DAYS ON, 7 DAYS OFF AS DIRECTED BY MD ORAL
     Route: 048
     Dates: start: 20170220, end: 20170408

REACTIONS (4)
  - Dehydration [None]
  - Urinary tract infection [None]
  - Asthenia [None]
  - Malignant neoplasm progression [None]

NARRATIVE: CASE EVENT DATE: 20170408
